FAERS Safety Report 8087744 (Version 3)
Quarter: 2013Q1

REPORT INFORMATION
  Report Type: Report from Study
  Country: US (occurrence: US)
  Receive Date: 20110812
  Receipt Date: 20130129
  Transmission Date: 20140127
  Serious: Yes (Hospitalization)
  Sender: FDA-Public Use
  Company Number: US-BRISTOL-MYERS SQUIBB COMPANY-15962319

PATIENT
  Age: 75 Year
  Sex: Female
  Weight: 83.2 kg

DRUGS (6)
  1. ERBITUX [Suspect]
     Indication: NON-SMALL CELL LUNG CANCER
     Dosage: TOTAL DOSE IN RECENT COURSE (2218MG);LAST DOSE 04AUG11,772MGX1(LOAD),482MG(ON DAYS 8,15 AND 22).
     Route: 042
     Dates: start: 20110714
  2. CARBOPLATIN [Suspect]
     Indication: NON-SMALL CELL LUNG CANCER
     Dosage: TOTAL DOSE IN RECENT COURSE (634MG);LAST DOSE ON 04AUG11,220MG(ON DAYS 8 AND 15),194MG ON DAY 22
     Route: 036
     Dates: start: 20110714
  3. TAXOL [Suspect]
     Indication: NON-SMALL CELL LUNG CANCER
     Dosage: TOTAL DOSE IN RECENT COURSE 261MG;LAST DOSE ON 04AUG11,87 MG (ON DAYS 8,15 AND 22).
     Route: 042
     Dates: start: 20110714
  4. HYDROCHLOROTHIAZIDE [Suspect]
  5. LASIX [Suspect]
  6. METOPROLOL [Concomitant]

REACTIONS (4)
  - Atrial fibrillation [Recovered/Resolved]
  - Dehydration [Recovered/Resolved]
  - Oesophagitis haemorrhagic [Recovered/Resolved]
  - Dizziness [Recovered/Resolved]
